FAERS Safety Report 13060877 (Version 1)
Quarter: 2016Q4

REPORT INFORMATION
  Report Type: Report from Study
  Country: CA (occurrence: CA)
  Receive Date: 20161225
  Receipt Date: 20161225
  Transmission Date: 20170207
  Serious: Yes (Hospitalization, Other)
  Sender: FDA-Public Use
  Company Number: CA-AMGEN-CANSL2016180304

PATIENT
  Age: 82 Year
  Sex: Female

DRUGS (13)
  1. PROLIA [Suspect]
     Active Substance: DENOSUMAB
     Indication: OSTEOPOROSIS
     Dosage: UNK
     Route: 065
     Dates: start: 20130129
  2. CLOPIDOGREL [Concomitant]
     Active Substance: CLOPIDOGREL BISULFATE
     Dosage: 75 MG, QD
  3. VALSARTAN. [Concomitant]
     Active Substance: VALSARTAN
     Dosage: 3.20 MG, UNK
  4. CALCIUM [Concomitant]
     Active Substance: CALCIUM
  5. METFORMIN [Concomitant]
     Active Substance: METFORMIN HYDROCHLORIDE
     Dosage: UNK 2 TAP, BID
  6. POTASSIUM [Concomitant]
     Active Substance: POTASSIUM
  7. SPIRONOLACTONE. [Concomitant]
     Active Substance: SPIRONOLACTONE
     Dosage: 25 MG, UNK
  8. EUROFER [Concomitant]
     Dosage: 300 MG, UNK
  9. ROSUVASTATIN. [Concomitant]
     Active Substance: ROSUVASTATIN
     Dosage: 10 MG, QD
  10. AMLODIPINE [Concomitant]
     Active Substance: AMLODIPINE BESYLATE
     Dosage: 10 MG, BID
  11. PANTOPRAZOLE [Concomitant]
     Active Substance: PANTOPRAZOLE SODIUM
     Dosage: 40 MG, QD
  12. VITAMIN C [Concomitant]
     Active Substance: ASCORBIC ACID
  13. VITAMIN D [Concomitant]
     Active Substance: CHOLECALCIFEROL

REACTIONS (8)
  - Pain [Unknown]
  - Dysstasia [Unknown]
  - Periarthritis [Unknown]
  - Head injury [Unknown]
  - Balance disorder [Unknown]
  - Limb injury [Unknown]
  - Gastrointestinal motility disorder [Unknown]
  - Fall [Unknown]

NARRATIVE: CASE EVENT DATE: 2016
